FAERS Safety Report 23604252 (Version 1)
Quarter: 2024Q1

REPORT INFORMATION
  Report Type: Spontaneous
  Country: US (occurrence: US)
  Receive Date: 20240307
  Receipt Date: 20240307
  Transmission Date: 20240410
  Serious: No
  Sender: FDA-Public Use
  Company Number: US-AMGEN-USASP2024045384

PATIENT
  Age: 80 Year
  Sex: Female

DRUGS (1)
  1. PROLIA [Suspect]
     Active Substance: DENOSUMAB
     Indication: Product used for unknown indication
     Dosage: UNK UNK, Q6MO
     Route: 065
     Dates: start: 202307, end: 2024

REACTIONS (6)
  - Dysstasia [Unknown]
  - Gait disturbance [Unknown]
  - Arthralgia [Unknown]
  - Myalgia [Unknown]
  - Chills [Unknown]
  - Feeling cold [Unknown]

NARRATIVE: CASE EVENT DATE: 20230701
